FAERS Safety Report 23109639 (Version 1)
Quarter: 2023Q4

REPORT INFORMATION
  Report Type: Spontaneous
  Country: US (occurrence: US)
  Receive Date: 20231026
  Receipt Date: 20231026
  Transmission Date: 20240110
  Serious: Yes (Hospitalization, Disabling)
  Sender: FDA-Public Use
  Company Number: US-MYLANLABS-2023M1112244

PATIENT
  Age: 62 Year
  Sex: Male

DRUGS (3)
  1. NOREPINEPHRINE [Suspect]
     Active Substance: NOREPINEPHRINE
     Indication: Shock haemorrhagic
     Dosage: 25 MICROGRAM, QMINUTE
     Route: 065
  2. PHENYLEPHRINE [Suspect]
     Active Substance: PHENYLEPHRINE HYDROCHLORIDE
     Indication: Shock haemorrhagic
     Dosage: 300 MICROGRAM, QMINUTE
     Route: 065
  3. VASOPRESSIN [Suspect]
     Active Substance: VASOPRESSIN
     Indication: Shock haemorrhagic
     Dosage: UNK (RECEIVED 0.03 UNITS/MIN)
     Route: 065

REACTIONS (6)
  - Ischaemia [Recovering/Resolving]
  - Gangrene [Unknown]
  - Condition aggravated [Unknown]
  - Hand amputation [Unknown]
  - Arterial thrombosis [Recovering/Resolving]
  - Necrosis ischaemic [Recovering/Resolving]
